APPROVED DRUG PRODUCT: CYCLOSPORINE
Active Ingredient: CYCLOSPORINE
Strength: 100MG
Dosage Form/Route: CAPSULE;ORAL
Application: A065110 | Product #002 | TE Code: AB1
Applicant: IVAX PHARMACEUTICALS INC SUB TEVA PHARMACEUTICALS USA
Approved: Mar 29, 2005 | RLD: No | RS: No | Type: RX